FAERS Safety Report 22920888 (Version 3)
Quarter: 2023Q4

REPORT INFORMATION
  Report Type: Spontaneous
  Country: US (occurrence: US)
  Receive Date: 20230908
  Receipt Date: 20231207
  Transmission Date: 20240110
  Serious: Yes (Hospitalization, Other)
  Sender: FDA-Public Use
  Company Number: US-BRISTOL-MYERS SQUIBB COMPANY-2023-125580

PATIENT
  Age: 49 Year
  Sex: Male

DRUGS (2)
  1. POMALYST [Suspect]
     Active Substance: POMALIDOMIDE
     Indication: Plasma cell myeloma
     Dosage: QD (EVERYDAY) DAILY FOR 21 DAYS ON AND 7 DAYS OFF
     Route: 048
     Dates: end: 202303
  2. KYPROLIS [Suspect]
     Active Substance: CARFILZOMIB
     Indication: Product used for unknown indication

REACTIONS (5)
  - Acute kidney injury [Recovered/Resolved]
  - Renal failure [Recovered/Resolved]
  - Haemorrhage [Recovered/Resolved]
  - Chromaturia [Recovered/Resolved]
  - Constipation [Unknown]

NARRATIVE: CASE EVENT DATE: 20230201
